FAERS Safety Report 4343633-3 (Version None)
Quarter: 2004Q2

REPORT INFORMATION
  Report Type: 
  Country: None (occurrence: None)
  Receive Date: 20040419
  Receipt Date: 20040405
  Transmission Date: 20050107
  Serious: Yes (Hospitalization)
  Sender: FDA-Public Use
  Company Number: 2004023496

PATIENT
  Sex: Female

DRUGS (1)
  1. ZOXAN LP (DOXAZOSIN) [Suspect]
     Indication: URINARY RETENTION

REACTIONS (2)
  - CHOLESTASIS [None]
  - CYTOLYTIC HEPATITIS [None]
